FAERS Safety Report 18595720 (Version 8)
Quarter: 2022Q3

REPORT INFORMATION
  Report Type: Report from Study
  Country: US (occurrence: US)
  Receive Date: 20201209
  Receipt Date: 20220713
  Transmission Date: 20221027
  Serious: Yes (Other)
  Sender: FDA-Public Use
  Company Number: US-TAKEDA-2020TUS054926

PATIENT
  Age: 45 Year
  Sex: Female
  Weight: 74 kg

DRUGS (44)
  1. HUMAN IMMUNOGLOBULIN G [Suspect]
     Active Substance: HUMAN IMMUNOGLOBULIN G
     Indication: Immunodeficiency common variable
     Dosage: 15 GRAM
     Route: 058
     Dates: start: 20160122
  2. HUMAN IMMUNOGLOBULIN G [Suspect]
     Active Substance: HUMAN IMMUNOGLOBULIN G
     Dosage: 15 GRAM, Q2WEEKS
     Route: 058
     Dates: start: 20200807
  3. HYQVIA [Concomitant]
     Active Substance: HUMAN IMMUNOGLOBULIN G\HYALURONIDASE RECOMBINANT HUMAN
     Route: 065
  4. ACETAMINOPHEN [Concomitant]
     Active Substance: ACETAMINOPHEN
     Route: 065
  5. DIPHENHYDRAMINE [Concomitant]
     Active Substance: DIPHENHYDRAMINE
     Route: 065
  6. EPINEPHRINE [Concomitant]
     Active Substance: EPINEPHRINE
     Route: 065
  7. SUMATRIPTAN SUCCINATE [Concomitant]
     Active Substance: SUMATRIPTAN SUCCINATE
     Route: 065
  8. ATIVAN [Concomitant]
     Active Substance: LORAZEPAM
     Route: 065
  9. LAMOTRIGINE [Concomitant]
     Active Substance: LAMOTRIGINE
     Route: 065
  10. KETOROLAC [Concomitant]
     Active Substance: KETOROLAC TROMETHAMINE
     Route: 065
  11. TROMETHAMINE [Concomitant]
     Active Substance: TROMETHAMINE
     Route: 065
  12. GABAPENTIN [Concomitant]
     Active Substance: GABAPENTIN
     Route: 065
  13. MAGNESIUM OXIDE [Concomitant]
     Active Substance: MAGNESIUM OXIDE
     Route: 065
  14. DESIPRAMINE HYDROCHLORIDE [Concomitant]
     Active Substance: DESIPRAMINE HYDROCHLORIDE
     Route: 065
  15. TOPIRAMATE [Concomitant]
     Active Substance: TOPIRAMATE
     Route: 065
  16. REXULTI [Concomitant]
     Active Substance: BREXPIPRAZOLE
     Route: 065
  17. TRAZODONE HCL [Concomitant]
     Active Substance: TRAZODONE HYDROCHLORIDE
     Route: 065
  18. SODIUM CHLORIDE [Concomitant]
     Active Substance: SODIUM CHLORIDE
     Route: 065
  19. MIRALAX [Concomitant]
     Active Substance: POLYETHYLENE GLYCOL 3350
     Route: 065
  20. VITAMINS [Concomitant]
     Active Substance: VITAMINS
     Route: 065
  21. VITAMIN D3 [Concomitant]
     Active Substance: CHOLECALCIFEROL
     Route: 065
  22. CVS ASPIRIN [Concomitant]
     Active Substance: ASPIRIN
     Route: 065
  23. OXYCODONE DAIICHI SANKYO [Concomitant]
     Route: 065
  24. BACTRIM [Concomitant]
     Active Substance: SULFAMETHOXAZOLE\TRIMETHOPRIM
     Route: 065
  25. DOXYCYCLINE [Concomitant]
     Active Substance: DOXYCYCLINE
     Route: 065
  26. FIBERCON [Concomitant]
     Active Substance: CALCIUM POLYCARBOPHIL
     Route: 065
  27. NIVANEX DMX [Concomitant]
     Active Substance: DEXTROMETHORPHAN HYDROBROMIDE\GUAIFENESIN\PHENYLEPHRINE HYDROCHLORIDE
     Route: 065
  28. SUMATRIPTAN SUCCINATE [Concomitant]
     Active Substance: SUMATRIPTAN SUCCINATE
     Route: 065
  29. SUCRALFATE [Concomitant]
     Active Substance: SUCRALFATE
     Route: 065
  30. CLARAVIS [Concomitant]
     Active Substance: ISOTRETINOIN
     Route: 065
  31. COENZYME Q10 [Concomitant]
     Active Substance: DIETARY SUPPLEMENT\UBIDECARENONE
     Route: 065
  32. VITAMIN B12 [Concomitant]
     Active Substance: CYANOCOBALAMIN
     Route: 065
  33. VITAMIN C [Concomitant]
     Active Substance: ASCORBIC ACID
     Route: 065
  34. FLAXSEED [Concomitant]
     Active Substance: FLAX SEED
     Route: 065
  35. FOLIC ACID [Concomitant]
     Active Substance: FOLIC ACID
     Route: 065
  36. VITAMIN E + MAGNESIUM [Concomitant]
     Route: 065
  37. NAPROXEN [Concomitant]
     Active Substance: NAPROXEN
     Dosage: UNK
     Route: 065
  38. ABTEI CALCIUM+D3 OSTEO VITAL [Concomitant]
     Route: 065
  39. VITAMIN B6 [Concomitant]
     Active Substance: PYRIDOXINE HYDROCHLORIDE
     Route: 065
  40. AMRIX [Concomitant]
     Active Substance: CYCLOBENZAPRINE HYDROCHLORIDE
     Route: 065
  41. DIETARY SUPPLEMENT [Concomitant]
     Active Substance: DIETARY SUPPLEMENT
     Route: 065
  42. HERBALS\TURMERIC [Concomitant]
     Active Substance: HERBALS\TURMERIC
     Route: 065
  43. FOLIC ACID\IRON [Concomitant]
     Active Substance: FOLIC ACID\IRON
     Dosage: UNK
     Route: 065
  44. AMINO ACIDS [Concomitant]
     Active Substance: AMINO ACIDS
     Dosage: UNK
     Route: 065

REACTIONS (10)
  - Bunion operation [Unknown]
  - Urinary tract infection [Unknown]
  - Tooth abscess [Unknown]
  - Infectious mononucleosis [Not Recovered/Not Resolved]
  - Sinusitis [Unknown]
  - Injection site urticaria [Unknown]
  - Ear infection [Unknown]
  - COVID-19 [Unknown]
  - Injection site pain [Unknown]
  - Inappropriate schedule of product administration [Unknown]

NARRATIVE: CASE EVENT DATE: 20210918
